FAERS Safety Report 9943577 (Version 1)
Quarter: 2014Q1

REPORT INFORMATION
  Report Type: Report from Study
  Country: US (occurrence: US)
  Receive Date: 20140303
  Receipt Date: 20140303
  Transmission Date: 20141002
  Serious: No
  Sender: FDA-Public Use
  Company Number: US-ABBVIE-13P-163-1048302-00

PATIENT
  Age: 62 Year
  Sex: Female

DRUGS (8)
  1. HUMIRA [Suspect]
     Indication: RHEUMATOID ARTHRITIS
     Dates: start: 201212
  2. LOSARTAN [Concomitant]
     Indication: BLOOD PRESSURE
  3. ZETIA [Concomitant]
     Indication: BLOOD CHOLESTEROL
  4. CLARINEX [Concomitant]
     Indication: SINUSITIS
  5. RESTASIS [Concomitant]
     Indication: DRY EYE
  6. VIVELLE DOT [Concomitant]
     Indication: OESTROGEN REPLACEMENT THERAPY
  7. GABAPENTIN [Concomitant]
     Indication: PAIN
  8. VITAMINS [Concomitant]
     Indication: VITAMIN SUPPLEMENTATION

REACTIONS (1)
  - Pain [Not Recovered/Not Resolved]
